FAERS Safety Report 8028223-3 (Version None)
Quarter: 2011Q4

REPORT INFORMATION
  Report Type: 
  Country: None (occurrence: None)
  Receive Date: 20111130
  Receipt Date: 20110523
  Transmission Date: 20120403
  Serious: Yes (Hospitalization, Other)
  Sender: FDA-Public Use
  Company Number: US200910005436

PATIENT
  Age: 70 Year
  Sex: Female

DRUGS (20)
  1. IRON (IRON) [Concomitant]
  2. COZAAR [Concomitant]
  3. ZAROXOLYN [Concomitant]
  4. TEKTURNA (ALISKIREN FUMARATE) [Concomitant]
  5. POTASSIUM CHLORIDE [Concomitant]
  6. HUMALOG MIX (INSULIN LISPRO, INSULIN LISPRO PROTAMINE SUSPENSION) [Concomitant]
  7. TRICOR [Concomitant]
  8. CARDURA [Concomitant]
  9. BYETTA [Suspect]
     Indication: DIABETES MELLITUS
     Dosage: 5 UG, BID, SUBCUTANEOUS ; 10 UG, BID, SUBCUTANEOUS ; 10 UG, BID, SUBCUTANEOUS
     Route: 058
     Dates: end: 20071005
  10. BYETTA [Suspect]
     Indication: DIABETES MELLITUS
     Dosage: 5 UG, BID, SUBCUTANEOUS ; 10 UG, BID, SUBCUTANEOUS ; 10 UG, BID, SUBCUTANEOUS
     Route: 058
     Dates: start: 20071008
  11. BYETTA [Suspect]
     Indication: DIABETES MELLITUS
     Dosage: 5 UG, BID, SUBCUTANEOUS ; 10 UG, BID, SUBCUTANEOUS ; 10 UG, BID, SUBCUTANEOUS
     Route: 058
     Dates: start: 20080607
  12. FUROSEMIDE [Concomitant]
  13. PROZAC [Concomitant]
  14. AMILORIDE HYDROCHLORIDE [Concomitant]
  15. LIPITOR [Concomitant]
  16. CATAPRES-TTS-1 [Concomitant]
  17. NEXIUM [Concomitant]
  18. VYTORIN [Concomitant]
  19. CRESTOR [Concomitant]
  20. ASPIRIN [Concomitant]

REACTIONS (4)
  - OFF LABEL USE [None]
  - GLYCOSYLATED HAEMOGLOBIN INCREASED [None]
  - RENAL FAILURE ACUTE [None]
  - RENAL FAILURE CHRONIC [None]
